FAERS Safety Report 12259521 (Version 1)
Quarter: 2016Q2

REPORT INFORMATION
  Report Type: Spontaneous
  Country: US (occurrence: US)
  Receive Date: 20160412
  Receipt Date: 20160412
  Transmission Date: 20160815
  Serious: No
  Sender: FDA-Public Use
  Company Number: US-SA-2015SA114361

PATIENT
  Age: 48 Year
  Sex: Male

DRUGS (2)
  1. ALLEGRA ALLERGY [Suspect]
     Active Substance: FEXOFENADINE HYDROCHLORIDE
     Indication: PARANASAL SINUS DISCOMFORT
     Dosage: START: USED IN PAST
     Route: 048
  2. ALLEGRA ALLERGY [Suspect]
     Active Substance: FEXOFENADINE HYDROCHLORIDE
     Indication: HEADACHE
     Dosage: START: USED IN PAST
     Route: 048

REACTIONS (2)
  - Feeling abnormal [Unknown]
  - Drug ineffective [Unknown]
